FAERS Safety Report 14829955 (Version 1)
Quarter: 2018Q2

REPORT INFORMATION
  Report Type: Spontaneous
  Country: AT (occurrence: AT)
  Receive Date: 20180430
  Receipt Date: 20180430
  Transmission Date: 20180711
  Serious: Yes (Life-Threatening, Other)
  Sender: FDA-Public Use
  Company Number: AT-MYLANLABS-M-EU-2015060404

PATIENT
  Age: 36 Year
  Sex: Female
  Weight: 72 kg

DRUGS (15)
  1. ZELDOX [Suspect]
     Active Substance: ZIPRASIDONE
     Dosage: 40 MG, UNK
     Dates: start: 20150126, end: 20150126
  2. LEPONEX [Suspect]
     Active Substance: CLOZAPINE
     Dosage: 800 MG, UNK
     Dates: start: 20150203
  3. CLOZAPINE. [Suspect]
     Active Substance: CLOZAPINE
     Dosage: 700 MG, QD
     Route: 065
     Dates: start: 200701, end: 20150202
  4. PRAXITEN [Concomitant]
     Active Substance: OXAZEPAM
     Indication: PRODUCT USED FOR UNKNOWN INDICATION
     Dosage: 22.5 MG, UNK
     Dates: start: 20150128, end: 20150131
  5. LEPONEX [Suspect]
     Active Substance: CLOZAPINE
     Indication: PRODUCT USED FOR UNKNOWN INDICATION
     Dosage: 700 MG, UNK
     Dates: start: 200701, end: 20150202
  6. OXAZEPAM. [Concomitant]
     Active Substance: OXAZEPAM
     Indication: PRODUCT USED FOR UNKNOWN INDICATION
     Dosage: UNK
     Route: 065
     Dates: start: 20150128, end: 20150131
  7. DOMINAL (PROTHIPENDYL HYDROCHLORIDE) [Suspect]
     Active Substance: PROTHIPENDYL HYDROCHLORIDE
     Indication: PRODUCT USED FOR UNKNOWN INDICATION
     Dosage: 80 MG, QD
     Dates: end: 20150126
  8. ABILIFY [Suspect]
     Active Substance: ARIPIPRAZOLE
     Indication: PRODUCT USED FOR UNKNOWN INDICATION
     Dosage: 5 MG, QD
     Route: 065
     Dates: start: 20150128, end: 20150129
  9. ZIPRASIDONE. [Suspect]
     Active Substance: ZIPRASIDONE
     Dosage: 40 MG, QD
     Route: 065
     Dates: start: 20150126, end: 20150126
  10. CLOZAPINE. [Suspect]
     Active Substance: CLOZAPINE
     Indication: PRODUCT USED FOR UNKNOWN INDICATION
     Dosage: 800 MG, QD
     Route: 065
     Dates: start: 20150203
  11. PROTHIPENDYL [Suspect]
     Active Substance: PROTHIPENDYL
     Indication: PRODUCT USED FOR UNKNOWN INDICATION
     Dosage: 80 MG, QD
     Route: 065
     Dates: end: 20150126
  12. SERTRALINE [Suspect]
     Active Substance: SERTRALINE HYDROCHLORIDE
     Indication: PRODUCT USED FOR UNKNOWN INDICATION
     Dosage: 100 MG, QD
     Route: 065
     Dates: end: 20150208
  13. ZIPRASIDONE. [Suspect]
     Active Substance: ZIPRASIDONE
     Indication: PRODUCT USED FOR UNKNOWN INDICATION
     Dosage: 100 MG, QD
     Route: 065
     Dates: start: 201304, end: 20150126
  14. DOMINAL (PROTHIPENDYL HYDROCHLORIDE) [Suspect]
     Active Substance: PROTHIPENDYL HYDROCHLORIDE
     Indication: PRODUCT USED FOR UNKNOWN INDICATION
     Dosage: 80 MG, UNK
     Route: 065
  15. ZELDOX [Suspect]
     Active Substance: ZIPRASIDONE
     Indication: PRODUCT USED FOR UNKNOWN INDICATION
     Dosage: 100 MG, UNK
     Dates: start: 201304, end: 20150125

REACTIONS (1)
  - Electrocardiogram QT prolonged [Recovered/Resolved]

NARRATIVE: CASE EVENT DATE: 20150128
